FAERS Safety Report 9216145 (Version 3)
Quarter: 2013Q2

REPORT INFORMATION
  Report Type: Spontaneous
  Country: PL (occurrence: None)
  Receive Date: 20130402
  Receipt Date: 20130506
  Transmission Date: 20140414
  Serious: Yes (Other)
  Sender: FDA-Public Use
  Company Number: AUR-APL-2013-02078

PATIENT
  Age: 83 Year
  Sex: Female
  Weight: 73 kg

DRUGS (6)
  1. GABAPENTIN [Suspect]
     Indication: RADICULOPATHY
     Dosage: 900 MG, 1 D, ORAL
     Route: 048
     Dates: start: 20121031, end: 20121107
  2. EFFERALGAN CODEINE (PANADEINE CO) [Concomitant]
  3. INDIX (INDAPAMIDE) [Concomitant]
  4. ROMAZIC (ROSUVASTATIN) [Concomitant]
  5. BETO ZK 50 (METOPROLOL) [Concomitant]
  6. KALIPOZ (POTASSIUM CHLORIDE) [Concomitant]

REACTIONS (4)
  - Swelling face [None]
  - Eyelid oedema [None]
  - Nausea [None]
  - Dizziness [None]
